FAERS Safety Report 5597207-7 (Version None)
Quarter: 2007Q4

REPORT INFORMATION
  Report Type: 
  Country: None (occurrence: None)
  Receive Date: 20071221
  Receipt Date: 20070923
  Transmission Date: 20080405
  Serious: No
  Sender: FDA-Public Use
  Company Number: US-CVT-070163

PATIENT
  Sex: Female

DRUGS (1)
  1. RANEXA [Suspect]
     Dosage: ORAL
     Route: 048
     Dates: start: 20070101

REACTIONS (1)
  - THERAPEUTIC RESPONSE UNEXPECTED [None]
